FAERS Safety Report 9310793 (Version 2)
Quarter: 2013Q2

REPORT INFORMATION
  Report Type: Spontaneous
  Country: IE (occurrence: IE)
  Receive Date: 20130528
  Receipt Date: 20130614
  Transmission Date: 20140414
  Serious: Yes (Hospitalization)
  Sender: FDA-Public Use
  Company Number: IE-AMGEN-IRLSP2013037343

PATIENT
  Age: 69 Year
  Sex: Female

DRUGS (14)
  1. NEULASTA [Suspect]
     Indication: PROPHYLAXIS
     Dosage: 6 MG/0.6ML, TWICE WEEKLY POST CHEMOTHERAPY
     Route: 058
     Dates: start: 20130410
  2. CHEMOTHERAPEUTICS [Concomitant]
     Indication: BREAST CANCER
     Dosage: UNK
  3. STILNOCT [Concomitant]
     Dosage: UNK
  4. SEVREDOL [Concomitant]
     Dosage: UNK
  5. MAXOLON [Concomitant]
     Dosage: UNK
  6. SENOKOT                            /00142201/ [Concomitant]
     Dosage: UNK
  7. WARFARIN [Concomitant]
     Dosage: UNK
  8. PROTIUM                            /01263204/ [Concomitant]
     Dosage: UNK
  9. STEMETIL                           /00013301/ [Concomitant]
     Dosage: UNK
  10. BUSCOPAN [Concomitant]
     Dosage: UNK
  11. METOCOR [Concomitant]
     Dosage: UNK
  12. MST                                /00021210/ [Concomitant]
     Dosage: UNK
  13. IMODIUM [Concomitant]
     Dosage: UNK
  14. VALOID                             /00014902/ [Concomitant]
     Dosage: UNK

REACTIONS (2)
  - Blood magnesium decreased [Unknown]
  - Blood potassium decreased [Unknown]
